FAERS Safety Report 9773388 (Version 1)
Quarter: 2013Q4

REPORT INFORMATION
  Report Type: Spontaneous
  Country: ES (occurrence: ES)
  Receive Date: 20131219
  Receipt Date: 20131219
  Transmission Date: 20140711
  Serious: Yes (Hospitalization)
  Sender: FDA-Public Use
  Company Number: ES-ELI_LILLY_AND_COMPANY-ES201312004347

PATIENT
  Age: 41 Year
  Sex: Female

DRUGS (2)
  1. ZYPREXA [Suspect]
     Indication: DEPRESSION
     Dosage: 15 MG, QD
     Route: 048
     Dates: start: 2010
  2. ZYPREXA [Suspect]
     Dosage: 5 MG, QD
     Route: 065

REACTIONS (3)
  - Hyperglycaemia [Recovered/Resolved]
  - Polydipsia psychogenic [Recovered/Resolved]
  - Off label use [Unknown]
